FAERS Safety Report 4348655-4 (Version None)
Quarter: 2004Q2

REPORT INFORMATION
  Report Type: 
  Country: None (occurrence: None)
  Receive Date: 20040423
  Receipt Date: 20040414
  Transmission Date: 20050107
  Serious: Yes (Hospitalization)
  Sender: FDA-Public Use
  Company Number: SE-JNJFOC-20040403111

PATIENT
  Age: 53 Year
  Sex: Female

DRUGS (2)
  1. REMICADE [Suspect]
     Indication: ANKYLOSING SPONDYLITIS
     Dosage: 600 MG , INTRAVENOUS
     Route: 042
     Dates: start: 20040210
  2. CELEBRA (CELECOXIB) [Concomitant]

REACTIONS (2)
  - EYE INFECTION [None]
  - RETINAL DETACHMENT [None]
